FAERS Safety Report 6935035-8 (Version None)
Quarter: 2010Q3

REPORT INFORMATION
  Report Type: 
  Country: None (occurrence: None)
  Receive Date: 20100822
  Receipt Date: 20100810
  Transmission Date: 20110219
  Serious: Yes (Hospitalization, Other)
  Sender: FDA-Public Use
  Company Number: PHFR2010GB00968

PATIENT
  Sex: Female

DRUGS (5)
  1. CLOZARIL [Suspect]
     Indication: SCHIZOPHRENIA
     Dosage: UNK, UNK
     Route: 048
     Dates: start: 20050617, end: 20100607
  2. LEVOTHYROXINE SODIUM [Concomitant]
     Dosage: 200MG/DAY
     Route: 048
  3. ESCITALOPRAM [Concomitant]
     Dosage: UNK
     Route: 048
  4. QUETIAPINE [Concomitant]
  5. LAMOTRIGINE [Concomitant]

REACTIONS (5)
  - BORDERLINE PERSONALITY DISORDER [None]
  - SELF-INJURIOUS IDEATION [None]
  - SURGERY [None]
  - SUTURE INSERTION [None]
  - TREATMENT NONCOMPLIANCE [None]
